FAERS Safety Report 7773054-2 (Version None)
Quarter: 2011Q3

REPORT INFORMATION
  Report Type: 
  Country: None (occurrence: None)
  Receive Date: 20110922
  Receipt Date: 20101222
  Transmission Date: 20111222
  Serious: No
  Sender: FDA-Public Use
  Company Number: US-ASTRAZENECA-2010SE60562

PATIENT
  Age: 52 Year
  Sex: Female
  Weight: 79.4 kg

DRUGS (7)
  1. SEROQUEL [Suspect]
     Indication: DEPRESSION
     Route: 048
  2. LOPRESSOR [Concomitant]
     Indication: HYPERTENSION
  3. SEROQUEL [Suspect]
     Route: 048
     Dates: start: 20050101
  4. TRAZODONE HYDROCHLORIDE [Concomitant]
  5. SEROQUEL [Suspect]
     Indication: INSOMNIA
     Route: 048
  6. SEROQUEL [Suspect]
     Route: 048
     Dates: start: 20050101
  7. XANAX [Concomitant]

REACTIONS (6)
  - WEIGHT INCREASED [None]
  - HYPERTENSION [None]
  - SLEEP DISORDER [None]
  - BLOOD CHOLESTEROL INCREASED [None]
  - DRUG INEFFECTIVE [None]
  - THYROID FUNCTION TEST ABNORMAL [None]
